FAERS Safety Report 7000382-0 (Version None)
Quarter: 2010Q3

REPORT INFORMATION
  Report Type: 
  Country: None (occurrence: None)
  Receive Date: 20100920
  Receipt Date: 20100517
  Transmission Date: 20110219
  Serious: Yes (Disabling)
  Sender: FDA-Public Use
  Company Number: US-ASTRAZENECA-2007UW08984

PATIENT
  Sex: Female

DRUGS (11)
  1. SEROQUEL [Suspect]
     Dosage: 100 MG TO 200 MG
     Route: 048
     Dates: start: 20041006
  2. HYDROCODONE BITARTRATE AND ACETAMINOPHEN [Concomitant]
     Dates: start: 20031202
  3. RISPERDAL [Concomitant]
     Dates: start: 20020418
  4. IMIPRAMINE HCL [Concomitant]
     Dates: start: 20040103
  5. GEODON [Concomitant]
     Dates: end: 20080131
  6. ABILIFY [Concomitant]
     Dates: start: 20080131
  7. KLONOPIN [Concomitant]
     Dates: start: 20080131
  8. EFFEXOR [Concomitant]
     Dosage: 150 MG PO Q AM  AND 75 MG PO Q PM
     Route: 048
     Dates: start: 20020418
  9. DESYREL [Concomitant]
     Dosage: 100 TO 200 MG
     Dates: start: 20020418
  10. ATIVAN [Concomitant]
     Dates: start: 20020418
  11. AMBIEN [Concomitant]
     Indication: SLEEP DISORDER
     Dosage: 10 MG PO Q HS,PRN
     Route: 048
     Dates: start: 20020418

REACTIONS (1)
  - DIABETES MELLITUS [None]
